FAERS Safety Report 12242133 (Version 1)
Quarter: 2016Q2

REPORT INFORMATION
  Report Type: Spontaneous
  Country: FR (occurrence: FR)
  Receive Date: 20160406
  Receipt Date: 20160406
  Transmission Date: 20160815
  Serious: Yes (Death, Hospitalization)
  Sender: FDA-Public Use
  Company Number: FR-ROCHE-1737133

PATIENT
  Age: 58 Year
  Sex: Female

DRUGS (8)
  1. TAXOTERE [Concomitant]
     Active Substance: DOCETAXEL
     Route: 065
     Dates: start: 20141127
  2. OROCAL (FRANCE) [Concomitant]
  3. PERJETA [Suspect]
     Active Substance: PERTUZUMAB
     Indication: PRODUCT USED FOR UNKNOWN INDICATION
     Dosage: 6 CYCLES, CYCALIC
     Route: 041
     Dates: start: 20141127, end: 20160113
  4. ANASTROZOLE. [Concomitant]
     Active Substance: ANASTROZOLE
     Route: 065
     Dates: start: 20150423
  5. FLECAINE [Concomitant]
     Active Substance: FLECAINIDE
     Route: 048
     Dates: end: 201512
  6. HERCEPTIN [Suspect]
     Active Substance: TRASTUZUMAB
     Indication: PRODUCT USED FOR UNKNOWN INDICATION
     Dosage: 6 CYCLES, CYCALIC
     Route: 041
     Dates: start: 20140926, end: 20160113
  7. CISPLATINE [Concomitant]
     Active Substance: CISPLATIN
     Route: 065
     Dates: start: 20141127
  8. XGEVA [Concomitant]
     Active Substance: DENOSUMAB
     Route: 058
     Dates: start: 20141107

REACTIONS (3)
  - Atrial fibrillation [Fatal]
  - Conduction disorder [Fatal]
  - Cardiac arrest [Fatal]
